FAERS Safety Report 9137890 (Version 1)
Quarter: 2013Q1

REPORT INFORMATION
  Report Type: Spontaneous
  Country: US (occurrence: US)
  Receive Date: 20130304
  Receipt Date: 20130304
  Transmission Date: 20140127
  Serious: Yes (Other)
  Sender: FDA-Public Use
  Company Number: PHEH2013US005004

PATIENT
  Sex: Female

DRUGS (19)
  1. EXFORGE [Suspect]
     Dosage: 160/10 MG, UNK
  2. JANUVIA [Concomitant]
     Dosage: UNK UKN, UNK
  3. ADVAIR [Concomitant]
     Dosage: UNK UKN, UNK
  4. FLUTICASONE [Concomitant]
     Dosage: UNK UKN, UNK
  5. SYNTHROID [Concomitant]
     Dosage: UNK UKN, UNK
  6. VALIUM [Concomitant]
     Dosage: UNK UKN, UNK
  7. CELEBREX [Concomitant]
     Dosage: UNK UKN, UNK
  8. PRILOSEC [Concomitant]
     Dosage: UNK UKN, UNK
  9. MIRAPEX [Concomitant]
     Dosage: UNK UKN, UNK
  10. TRILIPIX [Concomitant]
     Dosage: UNK UKN, UNK
  11. SINGULAR [Concomitant]
     Dosage: UNK UKN, UNK
  12. REMERON [Concomitant]
     Dosage: UNK UKN, UNK
  13. TRAMADOL [Concomitant]
     Dosage: UNK UKN, UNK
  14. LOTENSIN [Concomitant]
     Dosage: UNK UKN, UNK
  15. MUCINEX DM [Concomitant]
     Dosage: UNK UKN, UNK
  16. ANTIVERT                           /00007101/ [Concomitant]
     Dosage: UNK UKN, UNK
  17. BENTYL [Concomitant]
     Dosage: UNK UKN, UNK
  18. ULTRAM [Concomitant]
     Dosage: UNK UKN, UNK
  19. LEVSIN [Concomitant]
     Dosage: UNK UKN, UNK

REACTIONS (5)
  - Sleep apnoea syndrome [Unknown]
  - Chronic obstructive pulmonary disease [Unknown]
  - Diabetes mellitus [Unknown]
  - Glaucoma [Unknown]
  - Connective tissue disorder [Unknown]
